FAERS Safety Report 9505398 (Version 1)
Quarter: 2013Q1

REPORT INFORMATION
  Report Type: Spontaneous
  Country: US (occurrence: None)
  Receive Date: 20130225
  Receipt Date: 20130225
  Transmission Date: 20140127
  Serious: No
  Sender: FDA-Public Use
  Company Number: 369378

PATIENT
  Age: 53 Year
  Sex: Female

DRUGS (3)
  1. VICTOZA (LIRAGLUTIED) SOLUTION FOR INJECTION, 6MG/ML [Suspect]
     Indication: TYPE 2 DIABETES MELLITUS
     Dosage: UNK, SUBCUTANEOUS
     Route: 058
  2. LISINOPRIL (LISINOPRIL) [Concomitant]
  3. PRAVASTATIN (PRAVASTATIN) [Concomitant]

REACTIONS (2)
  - Eructation [None]
  - Nausea [None]
